FAERS Safety Report 7649349-X (Version None)
Quarter: 2011Q3

REPORT INFORMATION
  Report Type: 
  Country: None (occurrence: None)
  Receive Date: 20110802
  Receipt Date: 20110726
  Transmission Date: 20111222
  Serious: Yes (Other)
  Sender: FDA-Public Use
  Company Number: GXKR2011DK01032

PATIENT
  Sex: Female
  Weight: 75 kg

DRUGS (14)
  1. LAMICTAL [Interacting]
     Dosage: 350 MG, QD
     Route: 048
  2. ENALAPRIL MALEATE [Concomitant]
     Indication: HYPERTENSION
     Dosage: 10 MG, UNK
     Route: 048
  3. OXYCODONE HCL [Concomitant]
     Indication: PROCEDURAL PAIN
  4. ZINACEF [Interacting]
     Indication: POST PROCEDURAL INFECTION
     Dosage: 1.5 MG, TID
     Route: 030
     Dates: end: 20100425
  5. GENTAMICIN [Suspect]
     Dosage: 240 MG, UNK
     Dates: end: 20100715
  6. FUCIDIN                                 /SCH/ [Interacting]
     Indication: POST PROCEDURAL INFECTION
     Dosage: 500 MG, TID
     Route: 048
     Dates: end: 20100715
  7. LAMICTAL [Interacting]
     Dosage: 550 MG, QD
     Route: 048
     Dates: start: 20100910
  8. PERILAX [Interacting]
     Dosage: 5 MG, QD
     Route: 048
     Dates: end: 20100715
  9. AMLODIPINE [Concomitant]
     Indication: HYPERTENSION
     Dosage: 10 MG, UNK
     Route: 048
  10. LAMICTAL [Interacting]
     Dosage: 700 MG, QD
     Dates: start: 20100723
  11. DICLOXACILLIN [Concomitant]
     Dosage: 1 G, TID
     Dates: end: 20100425
  12. RIFAMPICIN [Interacting]
     Dosage: 300 MG, TID
     Route: 048
     Dates: end: 20100715
  13. LAMICTAL [Interacting]
     Indication: EPILEPSY
     Dosage: 350 MG, QD
     Route: 048
     Dates: start: 19800101
  14. LAMICTAL [Interacting]
     Route: 048
     Dates: start: 20100712

REACTIONS (3)
  - ABDOMINAL DISCOMFORT [None]
  - DRUG INTERACTION [None]
  - GRAND MAL CONVULSION [None]
